FAERS Safety Report 19781738 (Version 1)
Quarter: 2021Q3

REPORT INFORMATION
  Report Type: Spontaneous
  Country: US (occurrence: US)
  Receive Date: 20210902
  Receipt Date: 20210902
  Transmission Date: 20211014
  Serious: No
  Sender: FDA-Public Use
  Company Number: US-ENDO PHARMACEUTICALS INC-2021-009881

PATIENT
  Age: 53 Year
  Sex: Female
  Weight: 69.4 kg

DRUGS (10)
  1. ALBUTEROL                          /00139501/ [Concomitant]
     Active Substance: ALBUTEROL
     Indication: ASTHMA
  2. PREDNISONE. [Suspect]
     Active Substance: PREDNISONE
     Indication: RASH PAPULAR
     Dosage: TAPERED DOSE, 60 MG, X 2 DAYS
     Route: 065
     Dates: start: 202106
  3. BENADRYL [Suspect]
     Active Substance: DIPHENHYDRAMINE HYDROCHLORIDE
     Indication: RASH PAPULAR
     Dosage: 50 MG, EVERY 4 TO 6 HOURS (ALSO REPORTED AS TWO TO THREE TIMES A DAY)
     Route: 065
     Dates: start: 20210612
  4. PREDNISONE. [Suspect]
     Active Substance: PREDNISONE
     Dosage: 20 MG, FOR THE FOLLOWING 2 DAYS (ATLEAST 6?8 DAYS OF PREDNISONE)
  5. DECADRON [Concomitant]
     Active Substance: DEXAMETHASONE
     Indication: PRODUCT USED FOR UNKNOWN INDICATION
  6. COVID?19 VACCINE NOS. [Suspect]
     Active Substance: COVID-19 VACCINE NOS
     Indication: COVID-19 PROPHYLAXIS
     Dosage: UNK UNKNOWN, SINGLE
     Route: 065
     Dates: start: 20210521, end: 20210608
  7. LEVOTHYROXINE. [Concomitant]
     Active Substance: LEVOTHYROXINE
     Indication: HYPOTHYROIDISM
  8. ZITHROMAX [Concomitant]
     Active Substance: AZITHROMYCIN DIHYDRATE
     Indication: RASH PAPULAR
  9. PREDNISONE. [Suspect]
     Active Substance: PREDNISONE
     Dosage: 40 MG, THE NEXT 2 DAYS
  10. DULERA [Concomitant]
     Active Substance: FORMOTEROL FUMARATE DIHYDRATE\MOMETASONE FUROATE
     Indication: ASTHMA

REACTIONS (4)
  - Rash papular [Unknown]
  - Condition aggravated [Unknown]
  - Rash erythematous [Unknown]
  - Dyspnoea [Unknown]

NARRATIVE: CASE EVENT DATE: 202106
